FAERS Safety Report 25522433 (Version 1)
Quarter: 2025Q3

REPORT INFORMATION
  Report Type: Spontaneous
  Country: EU (occurrence: EU)
  Receive Date: 20250707
  Receipt Date: 20250707
  Transmission Date: 20251020
  Serious: No
  Sender: ALKEM
  Company Number: EU-ALKEM LABORATORIES LIMITED-FR-ALKEM-2025-05442

PATIENT
  Age: 72 Year
  Sex: Male

DRUGS (11)
  1. DRONABINOL [Suspect]
     Active Substance: DRONABINOL
     Indication: Peripheral sensory neuropathy
     Dosage: 2.5 MILLIGRAM, BID (SOFT, CAPSULE MOLLE)
     Route: 048
     Dates: start: 20250211, end: 20250413
  2. DRONABINOL [Suspect]
     Active Substance: DRONABINOL
     Indication: Neuralgia
     Dosage: 7.5 MILLIGRAM, BID (SOFT, CAPSULE MOLLE)
     Route: 048
     Dates: start: 20250414, end: 20250512
  3. DRONABINOL [Suspect]
     Active Substance: DRONABINOL
     Dosage: 5 MILLIGRAM, BID (SOFT, CAPSULE MOLLE)
     Route: 048
  4. DRONABINOL [Suspect]
     Active Substance: DRONABINOL
     Dosage: 5 MILLIGRAM, BID (SOFT, CAPSULE MOLLE)
     Route: 048
     Dates: start: 20250317, end: 20250413
  5. DRONABINOL [Suspect]
     Active Substance: DRONABINOL
     Dosage: 7.5 MILLIGRAM, BID (SOFT, CAPSULE MOLLE)
     Route: 048
     Dates: start: 20250414, end: 20250511
  6. DRONABINOL [Suspect]
     Active Substance: DRONABINOL
     Dosage: 5 MILLIGRAM, BID (SOFT, CAPSULE MOLLE) (REDUCED DOSE)
     Route: 048
  7. CANDESARTAN [Concomitant]
     Active Substance: CANDESARTAN
     Indication: Hypertension
     Dosage: 16 MILLIGRAM, QD
     Route: 065
  8. ESOMEPRAZOLE [Concomitant]
     Active Substance: ESOMEPRAZOLE
     Indication: Gastrooesophageal reflux disease
     Route: 065
  9. SIMVASTATIN [Concomitant]
     Active Substance: SIMVASTATIN
     Indication: Hypercholesterolaemia
     Route: 065
  10. ALFUZOSIN [Concomitant]
     Active Substance: ALFUZOSIN
     Indication: Product used for unknown indication
     Route: 065
  11. ZOLPIDEM [Concomitant]
     Active Substance: ZOLPIDEM TARTRATE
     Indication: Insomnia
     Route: 065

REACTIONS (2)
  - Asthenia [Unknown]
  - Memory impairment [Unknown]

NARRATIVE: CASE EVENT DATE: 20250414
